FAERS Safety Report 4527765-2 (Version None)
Quarter: 2004Q4

REPORT INFORMATION
  Report Type: 
  Country: None (occurrence: None)
  Receive Date: 20041124
  Receipt Date: 20040924
  Transmission Date: 20050328
  Serious: Yes (Other)
  Sender: FDA-Public Use
  Company Number: WAES 0409USA02218

PATIENT

DRUGS (1)
  1. VYTORIN [Suspect]
     Dosage: 10-40 MG/PO
     Route: 048

REACTIONS (1)
  - RHABDOMYOLYSIS [None]
